FAERS Safety Report 16725913 (Version 1)
Quarter: 2019Q3

REPORT INFORMATION
  Report Type: Spontaneous
  Country: GB (occurrence: GB)
  Receive Date: 20190821
  Receipt Date: 20190821
  Transmission Date: 20191005
  Serious: Yes (Other)
  Sender: FDA-Public Use
  Company Number: GB-TEVA-2019-GB-1094039

PATIENT
  Age: 99 Year
  Sex: Female
  Weight: 40 kg

DRUGS (8)
  1. ADCAL [Concomitant]
     Dosage: AT 12:00 AND 18:00.
     Dates: start: 20181030
  2. ZEROBASE [Concomitant]
     Active Substance: MINERAL OIL\PARAFFIN
     Indication: DRY SKIN
     Dosage: USE AS DIRECTED.
     Dates: start: 20190108
  3. DOXYCYCLINE. [Suspect]
     Active Substance: DOXYCYCLINE
     Route: 065
     Dates: start: 20190530
  4. MIRTAZAPINE. [Concomitant]
     Active Substance: MIRTAZAPINE
     Dosage: AT NIGHT.
     Dates: start: 20181024
  5. DIGOXIN. [Concomitant]
     Active Substance: DIGOXIN
     Dates: start: 20181122
  6. FUSIDIC ACID [Concomitant]
     Active Substance: FUSIDIC ACID
     Dosage: APPLY GENTLY 3 OR 4 TIMES PER DAY.
     Dates: start: 20190528, end: 20190531
  7. PARACETAMOL [Concomitant]
     Active Substance: ACETAMINOPHEN
     Dosage: TAKE 1 OR 2 EVERY 4-6 HOURS.
     Dates: start: 20181030
  8. CETIRIZINE [Concomitant]
     Active Substance: CETIRIZINE HYDROCHLORIDE
     Dates: start: 20190603

REACTIONS (2)
  - Swelling face [Recovered/Resolved]
  - Lip swelling [Recovered/Resolved]

NARRATIVE: CASE EVENT DATE: 20190604
